FAERS Safety Report 12393543 (Version 1)
Quarter: 2016Q2

REPORT INFORMATION
  Report Type: Spontaneous
  Country: US (occurrence: None)
  Receive Date: 20160520
  Receipt Date: 20160520
  Transmission Date: 20160815
  Serious: No
  Sender: FDA-Public Use
  Company Number: None

PATIENT
  Sex: Female

DRUGS (3)
  1. SOVALDI [Suspect]
     Active Substance: SOFOSBUVIR
     Indication: HEPATITIS VIRAL
     Route: 048
     Dates: start: 20151124
  2. DAKLINZA [Suspect]
     Active Substance: DACLATASVIR
     Indication: HEPATITIS VIRAL
     Route: 048
     Dates: start: 20151124
  3. RIBAVIRIN 200MG AUROBINDO [Suspect]
     Active Substance: RIBAVIRIN
     Indication: HEPATITIS VIRAL
     Route: 048
     Dates: start: 20151124

REACTIONS (2)
  - Thirst [None]
  - Dizziness [None]
